FAERS Safety Report 18798420 (Version 2)
Quarter: 2023Q4

REPORT INFORMATION
  Report Type: Report from Study
  Country: JP (occurrence: JP)
  Receive Date: 20210128
  Receipt Date: 20231031
  Transmission Date: 20240110
  Serious: Yes (Hospitalization, Other)
  Sender: FDA-Public Use
  Company Number: JP-TAKEDA-2021TJP001280

PATIENT
  Age: 79 Year
  Sex: Male
  Weight: 57 kg

DRUGS (9)
  1. PANITUMUMAB [Suspect]
     Active Substance: PANITUMUMAB
     Indication: Adenocarcinoma of colon
     Dosage: 342 MILLIGRAM, Q2WK
     Route: 065
     Dates: start: 20201130, end: 20210405
  2. IRINOTECAN [Suspect]
     Active Substance: IRINOTECAN
     Indication: Adenocarcinoma of colon
     Dosage: 249 MILLIGRAM, Q2WEEKS
     Route: 065
     Dates: start: 20201130, end: 20201221
  3. IRINOTECAN [Suspect]
     Active Substance: IRINOTECAN
     Dosage: 200 MILLIGRAM/KILOGRAM, Q2WK
     Route: 065
     Dates: start: 20210104
  4. IRINOTECAN [Suspect]
     Active Substance: IRINOTECAN
     Dosage: 200 MILLIGRAM, Q2WEEKS
     Route: 065
     Dates: start: 20210104, end: 20210104
  5. IRINOTECAN [Suspect]
     Active Substance: IRINOTECAN
     Dosage: 200 MILLIGRAM, Q2WEEKS
     Route: 065
     Dates: start: 20210222, end: 20210222
  6. IRINOTECAN [Suspect]
     Active Substance: IRINOTECAN
     Dosage: 150 MILLIGRAM, Q2WEEKS
     Route: 065
     Dates: start: 20210405, end: 20210405
  7. LANSOPRAZOLE [Concomitant]
     Active Substance: LANSOPRAZOLE
     Indication: Prophylaxis against gastrointestinal ulcer
     Dosage: 15 MILLIGRAM, QD
     Route: 065
     Dates: start: 20210104
  8. AMLODIPINE [Concomitant]
     Active Substance: AMLODIPINE BESYLATE
     Indication: Hypertension
     Dosage: 2.5 MILLIGRAM, QD
     Route: 065
     Dates: start: 20210104, end: 20210108
  9. DECADRON [Concomitant]
     Active Substance: DEXAMETHASONE
     Indication: Prophylaxis of nausea and vomiting
     Dosage: 4 MILLIGRAM, QD
     Route: 065
     Dates: start: 20210105, end: 20210106

REACTIONS (27)
  - Febrile neutropenia [Recovering/Resolving]
  - Leukopenia [Recovering/Resolving]
  - Dehydration [Recovering/Resolving]
  - Adjusted calcium decreased [Not Recovered/Not Resolved]
  - Blood creatinine increased [Not Recovered/Not Resolved]
  - Blood sodium decreased [Unknown]
  - Blood bilirubin decreased [Unknown]
  - Malaise [Recovering/Resolving]
  - Blood albumin decreased [Not Recovered/Not Resolved]
  - Weight decreased [Unknown]
  - Decreased appetite [Recovering/Resolving]
  - Fatigue [Unknown]
  - Alopecia [Unknown]
  - Peripheral sensory neuropathy [Unknown]
  - Haemoglobin decreased [Not Recovered/Not Resolved]
  - Blood alkaline phosphatase increased [Unknown]
  - Blood magnesium decreased [Unknown]
  - Aspartate aminotransferase increased [Unknown]
  - Alanine aminotransferase increased [Unknown]
  - Blood potassium increased [Unknown]
  - Blood lactate dehydrogenase increased [Not Recovered/Not Resolved]
  - Blood albumin decreased [Not Recovered/Not Resolved]
  - Blood creatinine increased [Not Recovered/Not Resolved]
  - Adjusted calcium decreased [Not Recovered/Not Resolved]
  - Blood alkaline phosphatase increased [Unknown]
  - Blood lactate dehydrogenase increased [Not Recovered/Not Resolved]
  - Haemoglobin decreased [Not Recovered/Not Resolved]

NARRATIVE: CASE EVENT DATE: 20210104
